FAERS Safety Report 7031141-0 (Version None)
Quarter: 2010Q4

REPORT INFORMATION
  Report Type: 
  Country: None (occurrence: None)
  Receive Date: 20101006
  Receipt Date: 20100927
  Transmission Date: 20110411
  Serious: Yes (Other)
  Sender: FDA-Public Use
  Company Number: US-US-EMD SERONO, INC.-7019303

PATIENT
  Sex: Male

DRUGS (5)
  1. REBIF [Suspect]
     Indication: MULTIPLE SCLEROSIS
     Route: 058
     Dates: start: 20100506, end: 20100619
  2. REBIF [Suspect]
     Route: 058
     Dates: start: 20100924
  3. ALLOPURINOL [Concomitant]
     Indication: GOUT
  4. INDOCIN [Concomitant]
     Indication: GOUT
  5. ATENOLOL [Concomitant]
     Indication: HYPERTENSION

REACTIONS (2)
  - GOUT [None]
  - INFLUENZA LIKE ILLNESS [None]
